FAERS Safety Report 23224995 (Version 2)
Quarter: 2024Q1

REPORT INFORMATION
  Report Type: Spontaneous
  Country: US (occurrence: US)
  Receive Date: 20231124
  Receipt Date: 20240213
  Transmission Date: 20240410
  Serious: Yes (Other)
  Sender: FDA-Public Use
  Company Number: US-BRISTOL-MYERS SQUIBB COMPANY-2023-169777

PATIENT
  Age: 63 Year
  Sex: Female

DRUGS (1)
  1. ABRAXANE [Suspect]
     Active Substance: PACLITAXEL
     Indication: Pancreatic carcinoma
     Dosage: 182.5MG, DAY 1 DAY 8 DAY 15 OR A 28 DAY CYCLE (ONE TREATMENT PER WEEK FOR 3 WEEKS)
     Route: 042
     Dates: start: 20230721, end: 20231012

REACTIONS (1)
  - Malignant neoplasm progression [Unknown]
